FAERS Safety Report 5493429-4 (Version None)
Quarter: 2007Q4

REPORT INFORMATION
  Report Type: 
  Country: None (occurrence: None)
  Receive Date: 20071019
  Receipt Date: 20071009
  Transmission Date: 20080405
  Serious: Yes (Hospitalization)
  Sender: FDA-Public Use
  Company Number: 2007-165488-NL

PATIENT
  Age: 29 Year
  Sex: Female

DRUGS (1)
  1. NUVARING [Suspect]
     Indication: CONTRACEPTION
     Dosage: DF VAGINAL
     Route: 067
     Dates: start: 20041124, end: 20070321

REACTIONS (4)
  - ECZEMA [None]
  - EOSINOPHILIC CELLULITIS [None]
  - LYMPHADENITIS [None]
  - MALAISE [None]
